FAERS Safety Report 5226873-0 (Version None)
Quarter: 2007Q1

REPORT INFORMATION
  Report Type: 
  Country: None (occurrence: None)
  Receive Date: 20070202
  Receipt Date: 20070123
  Transmission Date: 20070707
  Serious: Yes (Hospitalization, Other)
  Sender: FDA-Public Use
  Company Number: US-JNJFOC-20061001331

PATIENT
  Sex: Female
  Weight: 81.65 kg

DRUGS (6)
  1. ORTHO EVRA [Suspect]
     Indication: UTERINE LEIOMYOMA
     Route: 062
  2. ALBUTEROL [Concomitant]
  3. PREVACID [Concomitant]
  4. ASPIRIN [Concomitant]
  5. ADVAIR DISKUS 100/50 [Concomitant]
     Route: 055
  6. NASONEX [Concomitant]

REACTIONS (3)
  - ARTERIOSPASM CORONARY [None]
  - MYOCARDIAL INFARCTION [None]
  - OFF LABEL USE [None]
